FAERS Safety Report 8841185 (Version 2)
Quarter: 2013Q1

REPORT INFORMATION
  Report Type: Report from Study
  Country: US (occurrence: US)
  Receive Date: 20121015
  Receipt Date: 20130109
  Transmission Date: 20140127
  Serious: Yes (Death)
  Sender: FDA-Public Use
  Company Number: US-ABBOTT-12P-163-0994295-00

PATIENT
  Sex: Male
  Weight: 77.18 kg

DRUGS (13)
  1. CREON [Suspect]
     Indication: PANCREATITIS CHRONIC
     Dosage: CREON 20; 20,000 UNITS ONE TAB WITH MEALS
     Route: 048
     Dates: start: 200805
  2. CREON [Suspect]
     Dosage: 20MG Q AC
     Dates: start: 20090317, end: 20121010
  3. LYRICA [Concomitant]
     Indication: PAIN
  4. HYDROCODONE W/ACETAMINOPHEN [Concomitant]
     Indication: PRODUCT USED FOR UNKNOWN INDICATION
     Dosage: 10MG/325MG; 1 Q4 HRS MAX 6 TABS
  5. ACCU-CHEK ADVANTAGE MONITOR KIT [Concomitant]
     Indication: PRODUCT USED FOR UNKNOWN INDICATION
  6. AMBIEN [Concomitant]
     Indication: PRODUCT USED FOR UNKNOWN INDICATION
     Dosage: AT BEDTIME
     Route: 048
  7. PRAVASTATIN [Concomitant]
     Indication: PRODUCT USED FOR UNKNOWN INDICATION
     Dosage: TAKE 1 EVERYDAY
     Route: 048
  8. DURAGESIC [Concomitant]
     Indication: PAIN
     Dosage: APPLY 1 PATCH EVERY 48 TO 72 HOURS
  9. APIDRA SOLOSTAR PEN [Concomitant]
     Indication: PRODUCT USED FOR UNKNOWN INDICATION
  10. LANTUS [Concomitant]
     Indication: PRODUCT USED FOR UNKNOWN INDICATION
     Dosage: 100 UNITS/ML; 50 UNITS SUBQ EVERY NIGHT AT BEDTIME
  11. ASPIRIN [Concomitant]
     Indication: PRODUCT USED FOR UNKNOWN INDICATION
     Dosage: ENTERIC COATED TABLET; 325 MG DAILY
     Route: 048
  12. NIACIN [Concomitant]
     Indication: PRODUCT USED FOR UNKNOWN INDICATION
     Dosage: AT BEDTIME; 1/2 HR AFTER ASPIRIN W/SMALL LOW FAT SNACK
     Route: 048
  13. NORCO [Concomitant]
     Indication: PAIN

REACTIONS (1)
  - Death [Fatal]
